FAERS Safety Report 6505200-2 (Version None)
Quarter: 2009Q4

REPORT INFORMATION
  Report Type: 
  Country: None (occurrence: None)
  Receive Date: 20091218
  Receipt Date: 20091215
  Transmission Date: 20100525
  Serious: Yes (Death)
  Sender: FDA-Public Use
  Company Number: PHEH2009US17275

PATIENT
  Sex: Female

DRUGS (1)
  1. EXJADE [Suspect]
     Dosage: 1000 MG DAILY
     Route: 048

REACTIONS (4)
  - FRACTURE NONUNION [None]
  - OPEN FRACTURE [None]
  - WOUND INFECTION [None]
  - WOUND SEPSIS [None]
